FAERS Safety Report 5293760-1 (Version None)
Quarter: 2007Q2

REPORT INFORMATION
  Report Type: 
  Country: None (occurrence: None)
  Receive Date: 20070411
  Receipt Date: 20070330
  Transmission Date: 20071010
  Serious: Yes (Death, Other)
  Sender: FDA-Public Use
  Company Number: US-PFIZER INC-2006153537

PATIENT
  Sex: Male
  Weight: 218 kg

DRUGS (4)
  1. NEURONTIN [Suspect]
     Indication: BIPOLAR DISORDER
  2. NEURONTIN [Suspect]
     Indication: ANXIETY
  3. CELEXA [Concomitant]
     Dosage: DAILY DOSE:40MG-FREQ:DAILY
  4. WELLBUTRIN SR [Concomitant]

REACTIONS (9)
  - ABNORMAL BEHAVIOUR [None]
  - AGGRESSION [None]
  - AGITATION [None]
  - AKATHISIA [None]
  - COMPLETED SUICIDE [None]
  - DRUG INEFFECTIVE [None]
  - HOMICIDE [None]
  - MOOD ALTERED [None]
  - PSYCHOTIC DISORDER [None]
